FAERS Safety Report 9528208 (Version 1)
Quarter: 2013Q1

REPORT INFORMATION
  Report Type: Spontaneous
  Country: US (occurrence: None)
  Receive Date: 20130314
  Receipt Date: 20130314
  Transmission Date: 20140127
  Serious: No
  Sender: FDA-Public Use
  Company Number: 1208USA001931

PATIENT
  Age: 54 Year
  Sex: Male

DRUGS (3)
  1. VICTRELIS [Suspect]
     Indication: HEPATITIS C
     Dosage: 800 MG, TID,ORAL
     Route: 048
     Dates: start: 20120608
  2. PEGINTRON [Suspect]
     Indication: HEPATITIS C
     Dosage: UNK
  3. RIBASPHERE [Suspect]
     Indication: HEPATITIS C

REACTIONS (2)
  - Somnolence [None]
  - Asthenia [None]
